FAERS Safety Report 9435177 (Version 1)
Quarter: 2013Q3

REPORT INFORMATION
  Report Type: Spontaneous
  Country: IT (occurrence: IT)
  Receive Date: 20130801
  Receipt Date: 20130801
  Transmission Date: 20140515
  Serious: Yes (Other)
  Sender: FDA-Public Use
  Company Number: IT-TEVA-422272ISR

PATIENT
  Age: 65 Year
  Sex: Male

DRUGS (5)
  1. ETOPOSIDE TEVA [Suspect]
     Indication: THYMOMA
     Dosage: 165 MILLIGRAM DAILY;
     Route: 042
     Dates: start: 20130722, end: 20130722
  2. CISPLATINO TEVA ITALIA [Concomitant]
     Dosage: 50 MILLIGRAM DAILY; CONCENTRATE FOR SOLUTION FOR INTRAVENOUS INFUSION
     Route: 042
  3. DESAMETASONE FOSFATO HOSPIRA [Concomitant]
     Dosage: 12 MILLIGRAM DAILY;
     Route: 030
  4. ZANTAC [Concomitant]
     Dosage: 50 MILLIGRAM DAILY;
     Route: 030
  5. GRANISETRON KABI [Concomitant]
     Dosage: 3 MILLIGRAM DAILY; CONCENTRATE FOR INJECTABLE SOLUTION
     Route: 030

REACTIONS (4)
  - Dyspnoea [Recovered/Resolved]
  - Rash [Recovered/Resolved]
  - Oxygen saturation decreased [Recovered/Resolved]
  - Chest discomfort [Recovered/Resolved]
